FAERS Safety Report 9791370 (Version 1)
Quarter: 2014Q1

REPORT INFORMATION
  Report Type: Spontaneous
  Country: US (occurrence: US)
  Receive Date: 20140101
  Receipt Date: 20140101
  Transmission Date: 20141002
  Serious: No
  Sender: FDA-Public Use
  Company Number: US-B.I. PHARMACEUTICALS,INC./RIDGEFIELD-2013-BI-43416BP

PATIENT
  Age: 87 Year
  Sex: Female
  Weight: 86 kg

DRUGS (3)
  1. COMBIVENT [Suspect]
     Indication: CHRONIC OBSTRUCTIVE PULMONARY DISEASE
     Dosage: DOSE PER APPLICATION: 18 MCG / 103 MCG;
     Route: 055
     Dates: start: 2003, end: 201307
  2. LOSARTAN [Concomitant]
     Indication: HYPERTENSION
     Dosage: 100 MG
     Route: 048
     Dates: start: 2003
  3. ECOTRIN [Concomitant]
     Indication: TACHYCARDIA
     Dosage: 325 MG
     Route: 048
     Dates: start: 1998

REACTIONS (2)
  - Hypertension [Recovered/Resolved]
  - Chronic obstructive pulmonary disease [Recovered/Resolved]
